FAERS Safety Report 9265316 (Version 1)
Quarter: 2013Q2

REPORT INFORMATION
  Report Type: Spontaneous
  Country: US (occurrence: US)
  Receive Date: 20130501
  Receipt Date: 20130501
  Transmission Date: 20140414
  Serious: Yes (Hospitalization)
  Sender: FDA-Public Use
  Company Number: US-AMGEN-USASP2013029504

PATIENT
  Age: 82 Year
  Sex: Male

DRUGS (4)
  1. SENSIPAR [Suspect]
     Indication: HYPERPARATHYROIDISM PRIMARY
     Dosage: 30 MG, BID
  2. LIPITOR [Concomitant]
  3. PROTONIX [Concomitant]
  4. ARICEPT [Concomitant]

REACTIONS (1)
  - Hypercalcaemia [Unknown]
